FAERS Safety Report 9520375 (Version 1)
Quarter: 2013Q3

REPORT INFORMATION
  Report Type: Spontaneous
  Country: SE (occurrence: SE)
  Receive Date: 20130912
  Receipt Date: 20130912
  Transmission Date: 20140515
  Serious: Yes (Other)
  Sender: FDA-Public Use
  Company Number: SE-B.I. PHARMACEUTICALS,INC./RIDGEFIELD-2013-SW-00443SW

PATIENT
  Sex: Female

DRUGS (3)
  1. SPIRIVA [Suspect]
  2. PULMICORT [Concomitant]
  3. OXIS TURBUHALER [Concomitant]

REACTIONS (9)
  - Throat irritation [Unknown]
  - Dyspnoea [Unknown]
  - Dysphonia [Unknown]
  - Tongue oedema [Unknown]
  - Arthralgia [Unknown]
  - Myalgia [Unknown]
  - Anxiety [Unknown]
  - Micturition disorder [Unknown]
  - Vision blurred [Unknown]
